FAERS Safety Report 9542293 (Version 1)
Quarter: 2013Q2

REPORT INFORMATION
  Report Type: Spontaneous
  Country: US (occurrence: None)
  Receive Date: 20130524
  Receipt Date: 20130524
  Transmission Date: 20140414
  Serious: No
  Sender: FDA-Public Use
  Company Number: PHEH2013US003877

PATIENT
  Sex: Female

DRUGS (1)
  1. GILENYA (FINGOLIMOD) CAPSULE, 0.5MG [Suspect]
     Indication: MULTIPLE SCLEROSIS
     Route: 048
     Dates: start: 20130116

REACTIONS (8)
  - Musculoskeletal pain [None]
  - Neck pain [None]
  - Joint stiffness [None]
  - Fibromyalgia [None]
  - Nasopharyngitis [None]
  - Back pain [None]
  - Headache [None]
  - Cough [None]
